FAERS Safety Report 6073364-3 (Version None)
Quarter: 2009Q1

REPORT INFORMATION
  Report Type: 
  Country: None (occurrence: None)
  Receive Date: 20090211
  Receipt Date: 20090130
  Transmission Date: 20090719
  Serious: Yes (Other)
  Sender: FDA-Public Use
  Company Number: US-ROCHE-552210

PATIENT
  Sex: Male
  Weight: 71.7 kg

DRUGS (5)
  1. ACCUTANE [Suspect]
     Indication: ACNE
     Dosage: DOSE ALTERNATES-40MG ON ODD DAYS AND 80MG ON EVEN DAYS.
     Route: 065
     Dates: start: 19920217, end: 19920701
  2. ACCUTANE [Suspect]
     Dosage: DOSE ALTERNATES-40MG ON ODD DAYS, AND 80MG ON EVEN DAYS.
     Route: 065
     Dates: start: 19930306, end: 19930601
  3. ACCUTANE [Suspect]
     Route: 065
     Dates: start: 19970731, end: 19971231
  4. ELOCON [Concomitant]
  5. BACTROBAN [Concomitant]

REACTIONS (10)
  - ANAL FISSURE [None]
  - ARTHRITIS ENTEROPATHIC [None]
  - COLONIC POLYP [None]
  - CROHN'S DISEASE [None]
  - DEPRESSION [None]
  - INFLAMMATORY BOWEL DISEASE [None]
  - LIP DRY [None]
  - LOCALISED INFECTION [None]
  - PROCTALGIA [None]
  - PROCTITIS [None]
